FAERS Safety Report 25945993 (Version 2)
Quarter: 2025Q4

REPORT INFORMATION
  Report Type: Spontaneous
  Country: US (occurrence: US)
  Receive Date: 20251021
  Receipt Date: 20251027
  Transmission Date: 20260118
  Serious: Yes (Other)
  Sender: BAUSCH AND LOMB
  Company Number: US-BAUSCHBL-2025BNL030228

PATIENT
  Age: 63 Year
  Sex: Male
  Weight: 86 kg

DRUGS (2)
  1. BLINK BOOST [Suspect]
     Active Substance: GLYCERIN
     Indication: Dry eye
     Route: 047
  2. BLINK BOOST [Suspect]
     Active Substance: GLYCERIN
     Route: 047
     Dates: start: 202508, end: 202510

REACTIONS (3)
  - Product contamination microbial [Unknown]
  - Vision blurred [Unknown]
  - Poor quality product administered [Unknown]

NARRATIVE: CASE EVENT DATE: 20250101
